FAERS Safety Report 14106570 (Version 1)
Quarter: 2017Q4

REPORT INFORMATION
  Report Type: Spontaneous
  Country: US (occurrence: US)
  Receive Date: 20171019
  Receipt Date: 20171019
  Transmission Date: 20180321
  Serious: No
  Sender: FDA-Public Use
  Company Number: US-PFIZER INC-2017448161

PATIENT
  Age: 39 Year
  Sex: Female

DRUGS (1)
  1. ADVIL MENSTRUAL PAIN [Suspect]
     Active Substance: IBUPROFEN SODIUM
     Dosage: UNK

REACTIONS (2)
  - Therapeutic response unexpected [Unknown]
  - Pre-existing condition improved [Unknown]
